FAERS Safety Report 11518699 (Version 2)
Quarter: 2015Q4

REPORT INFORMATION
  Report Type: Spontaneous
  Country: DE (occurrence: DE)
  Receive Date: 20150917
  Receipt Date: 20151002
  Transmission Date: 20160304
  Serious: Yes (Other)
  Sender: FDA-Public Use
  Company Number: DE-BAYER-2015-423047

PATIENT
  Age: 29 Year
  Sex: Female

DRUGS (6)
  1. DICLOFENAC [Suspect]
     Active Substance: DICLOFENAC
     Indication: RHEUMATOID ARTHRITIS
     Dosage: 75 MG, BID
  2. BECLOMETHASONE [Suspect]
     Active Substance: BECLOMETHASONE
     Indication: BRONCHITIS CHRONIC
  3. PREDNISOLONE. [Suspect]
     Active Substance: PREDNISOLONE
     Indication: RHEUMATOID ARTHRITIS
     Dosage: DAILY DOSE 6 MG
  4. FORMOTEROL [Suspect]
     Active Substance: FORMOTEROL
     Indication: BRONCHITIS CHRONIC
  5. OMEPRAZOLE + SODIUM BICARBONATE [Suspect]
     Active Substance: OMEPRAZOLE\SODIUM BICARBONATE
     Indication: PROPHYLAXIS AGAINST GASTROINTESTINAL ULCER
     Dosage: DAILY DOSE 20 MG
  6. SULFASALAZINE. [Suspect]
     Active Substance: SULFASALAZINE
     Indication: RHEUMATOID ARTHRITIS
     Dosage: DAILY DOSE 500 MG

REACTIONS (5)
  - Maternal exposure during pregnancy [None]
  - Hepatic enzyme increased [None]
  - Premature rupture of membranes [None]
  - Premature labour [None]
  - Oligohydramnios [Recovered/Resolved]
